FAERS Safety Report 10045624 (Version 1)
Quarter: 2014Q1

REPORT INFORMATION
  Report Type: Spontaneous
  Country: IT (occurrence: IT)
  Receive Date: 20140328
  Receipt Date: 20140328
  Transmission Date: 20141002
  Serious: Yes (Other)
  Sender: FDA-Public Use
  Company Number: IT-MYLANLABS-2014S1006304

PATIENT
  Age: 74 Year
  Sex: Male

DRUGS (3)
  1. DELORAZEPAM [Suspect]
     Indication: BIPOLAR DISORDER
     Dosage: 500 UG TOTAL
     Route: 048
     Dates: start: 20130101, end: 20140123
  2. SERTRALINE HYDROCHLORIDE [Suspect]
     Indication: BIPOLAR DISORDER
     Dosage: 500 MG DAILY
     Route: 048
     Dates: start: 20130101, end: 20140123
  3. NOZINAN [Suspect]
     Indication: BIPOLAR DISORDER
     Dosage: 50 MG DAILY
     Route: 048
     Dates: start: 20130101, end: 20140123

REACTIONS (1)
  - Movement disorder [Unknown]
